FAERS Safety Report 20146423 (Version 1)
Quarter: 2021Q4

REPORT INFORMATION
  Report Type: Spontaneous
  Country: US (occurrence: US)
  Receive Date: 20211203
  Receipt Date: 20211203
  Transmission Date: 20220303
  Serious: No
  Sender: FDA-Public Use
  Company Number: US-AMNEAL PHARMACEUTICALS-2021-AMRX-02184

PATIENT
  Sex: Male
  Weight: 79 kg

DRUGS (4)
  1. IBUPROFEN [Suspect]
     Active Substance: IBUPROFEN
     Indication: Osteoarthritis
     Dosage: 800 MILLIGRAM, UNK
     Route: 065
  2. DICLOFENAC SODIUM [Suspect]
     Active Substance: DICLOFENAC SODIUM
     Indication: Osteoarthritis
     Dosage: 2 TABLETS, DAILY
     Route: 065
     Dates: start: 20210416, end: 2021
  3. CELECOXIB [Suspect]
     Active Substance: CELECOXIB
     Indication: Osteoarthritis
     Dosage: 200 MILLIGRAM, SINGLE
     Route: 065
     Dates: start: 20200518, end: 20200518
  4. CELEBREX [Concomitant]
     Active Substance: CELECOXIB
     Indication: Osteoarthritis
     Dosage: 200 MILLIGRAM, DAILY
     Route: 048
     Dates: start: 202105

REACTIONS (4)
  - Therapeutic response shortened [Unknown]
  - Rotator cuff syndrome [Recovering/Resolving]
  - Mood altered [Recovered/Resolved]
  - Musculoskeletal stiffness [Unknown]

NARRATIVE: CASE EVENT DATE: 20200101
